FAERS Safety Report 16624386 (Version 6)
Quarter: 2019Q4

REPORT INFORMATION
  Report Type: Report from Study
  Country: US (occurrence: US)
  Receive Date: 20190724
  Receipt Date: 20191218
  Transmission Date: 20200122
  Serious: Yes (Death, Life-Threatening, Hospitalization, Other)
  Sender: FDA-Public Use
  Company Number: PHEH2019US030235

PATIENT
  Age: 54 Year
  Sex: Male

DRUGS (5)
  1. KYMRIAH [Suspect]
     Active Substance: TISAGENLECLEUCEL
     Indication: NON-HODGKIN^S LYMPHOMA
     Dosage: UNK UNK, ONCE/SINGLE
     Route: 041
     Dates: start: 20190620
  2. PREDNISONE. [Concomitant]
     Active Substance: PREDNISONE
     Indication: PRODUCT USED FOR UNKNOWN INDICATION
     Dosage: UNK
     Route: 065
     Dates: start: 20190716, end: 20190723
  3. KEPPRA [Concomitant]
     Active Substance: LEVETIRACETAM
     Indication: CRANIOCEREBRAL INJURY
     Dosage: UNK
     Route: 065
  4. METHYLPREDNISOLONE. [Concomitant]
     Active Substance: METHYLPREDNISOLONE
     Indication: PRODUCT USED FOR UNKNOWN INDICATION
     Dosage: UNK
     Route: 065
     Dates: start: 20190709, end: 20190715
  5. DEXAMETHASONE. [Concomitant]
     Active Substance: DEXAMETHASONE
     Indication: PRODUCT USED FOR UNKNOWN INDICATION
     Dosage: UNK
     Route: 065
     Dates: start: 20190705, end: 20190709

REACTIONS (34)
  - Malignant neoplasm progression [Fatal]
  - CSF lymphocyte count increased [Unknown]
  - Nephropathy toxic [Unknown]
  - Streptococcus test positive [Unknown]
  - CAR T-cell-related encephalopathy syndrome [Recovered/Resolved]
  - Lethargy [Unknown]
  - Thrombocytopenia [Unknown]
  - Cerebral ischaemia [Unknown]
  - Cytokine release syndrome [Recovered/Resolved]
  - Neurotoxicity [Unknown]
  - Aphasia [Unknown]
  - Hypotension [Unknown]
  - Embolic stroke [Unknown]
  - Upper gastrointestinal haemorrhage [Unknown]
  - Bacterial test positive [Unknown]
  - Paraparesis [Unknown]
  - Motor dysfunction [Unknown]
  - Brain oedema [Unknown]
  - Non-Hodgkin^s lymphoma [Fatal]
  - Pyrexia [Unknown]
  - Hypoxia [Unknown]
  - Disorientation [Unknown]
  - Oliguria [Unknown]
  - Depressed level of consciousness [Unknown]
  - Hemiparesis [Unknown]
  - Respiratory tract infection fungal [Unknown]
  - Facial paralysis [Unknown]
  - Cytopenia [Unknown]
  - Mental status changes [Unknown]
  - Multiple organ dysfunction syndrome [Unknown]
  - Coagulopathy [Unknown]
  - CSF protein increased [Unknown]
  - Acute kidney injury [Unknown]
  - CSF glucose increased [Unknown]

NARRATIVE: CASE EVENT DATE: 20190701
